FAERS Safety Report 6381046-3 (Version None)
Quarter: 2009Q3

REPORT INFORMATION
  Report Type: 
  Country: None (occurrence: None)
  Receive Date: 20090929
  Receipt Date: 20090918
  Transmission Date: 20100115
  Serious: Yes (Disabling, Other)
  Sender: FDA-Public Use
  Company Number: US-WYE-H10157809

PATIENT
  Sex: Female
  Weight: 75.82 kg

DRUGS (6)
  1. PRISTIQ [Suspect]
     Route: 048
     Dates: start: 20090527, end: 20090527
  2. ASCORBIC ACID/ERGOCALCIFEROL/FOLIC ACID/NICOTINAMIDE/PANTHENOL/RETINOL [Concomitant]
     Dosage: UNKNOWN
  3. CALCIUM PANTOTHENATE/NICOTINAMIDE/PYRIDOXINE HYDROCHLORIDE/RIBOFLAVIN/ [Concomitant]
     Dosage: UNKNOWN
  4. BUTALBITAL/CAFFEINE/PARACETAMOL [Concomitant]
     Dosage: UNKNOWN
  5. BENICAR [Concomitant]
     Dosage: 20 MG, UNSPECIFIED FREQUENCY
  6. PROTONIX [Concomitant]
     Dosage: UNKNOWN

REACTIONS (6)
  - BURNING SENSATION [None]
  - DEAFNESS NEUROSENSORY [None]
  - FLUSHING [None]
  - HYPERACUSIS [None]
  - NAUSEA [None]
  - TINNITUS [None]
